FAERS Safety Report 5694504-1 (Version None)
Quarter: 2008Q2

REPORT INFORMATION
  Report Type: 
  Country: None (occurrence: None)
  Receive Date: 20080404
  Receipt Date: 20080326
  Transmission Date: 20081010
  Serious: Yes (Death, Other)
  Sender: FDA-Public Use
  Company Number: US-ELI_LILLY_AND_COMPANY-US200802001319

PATIENT
  Sex: Female
  Weight: 81.179 kg

DRUGS (10)
  1. ALIMTA [Suspect]
     Indication: NON-SMALL CELL LUNG CANCER METASTATIC
     Dates: start: 20060101
  2. FOLIC ACID [Concomitant]
     Indication: SUPPLEMENTATION THERAPY
     Dosage: 1 MG, DAILY (1/D)
     Dates: start: 20060317
  3. VITAMIN B-12 [Concomitant]
     Indication: SUPPLEMENTATION THERAPY
     Dosage: 1000 UG, OTHER
     Route: 030
     Dates: start: 20060317
  4. LEXAPRO [Concomitant]
     Dosage: 20 MG, DAILY (1/D)
     Dates: start: 20060317
  5. EFFEXOR [Concomitant]
     Dosage: 37.5
     Dates: start: 20060317
  6. TOURO A + H [Concomitant]
     Dosage: 1 D/F, 2/D
     Route: 048
     Dates: start: 20060317
  7. ALBUTEROL [Concomitant]
     Dosage: UNK, 3/D
     Route: 055
  8. FLOVENT [Concomitant]
     Dosage: 2 D/F, 3/D
  9. DILTIAZEM HCL EXTE-REL CAPS USP27 [Concomitant]
     Dosage: 120 MG, DAILY (1/D)
  10. PERCOCET [Concomitant]

REACTIONS (5)
  - ASPARTATE AMINOTRANSFERASE ABNORMAL [None]
  - BLOOD ALKALINE PHOSPHATASE INCREASED [None]
  - HAEMATOCRIT ABNORMAL [None]
  - PROTEIN TOTAL INCREASED [None]
  - SUDDEN DEATH [None]
